FAERS Safety Report 8548758-4 (Version None)
Quarter: 2012Q3

REPORT INFORMATION
  Report Type: 
  Country: None (occurrence: None)
  Receive Date: 20120730
  Receipt Date: 20120724
  Transmission Date: 20120928
  Serious: Yes (Other)
  Sender: FDA-Public Use
  Company Number: PHEH2012US013896

PATIENT
  Sex: Female

DRUGS (17)
  1. LORATADINE [Concomitant]
  2. BENICAR [Concomitant]
  3. MULTI-VITAMINS [Concomitant]
  4. ACAI [Concomitant]
  5. ACID REDUCER [Concomitant]
  6. VIVELLE-DOT [Suspect]
     Dosage: 0.025 UKN, UNK
     Route: 062
  7. VIVELLE-DOT [Suspect]
     Indication: HORMONE THERAPY
  8. VIVELLE-DOT [Suspect]
     Dosage: 0.05 UKN, QW2
     Route: 062
  9. PRASTERONE [Concomitant]
     Dosage: 25 MG, UNK
  10. MULTI-VITAMINS [Concomitant]
  11. NAPROXIN [Concomitant]
  12. ATENOLOL [Concomitant]
     Dosage: 50 MG, BID
  13. VITAMIN B COMPLEX CAP [Concomitant]
  14. ATTENOLLE [Concomitant]
  15. HERBAL PREPARATION [Concomitant]
  16. B VITAMIN [Concomitant]
  17. CALCIUM [Concomitant]

REACTIONS (3)
  - PRODUCT ADHESION ISSUE [None]
  - HYPERTENSION [None]
  - SYSTEMIC LUPUS ERYTHEMATOSUS [None]
